FAERS Safety Report 14226305 (Version 1)
Quarter: 2017Q4

REPORT INFORMATION
  Report Type: Spontaneous
  Country: US (occurrence: US)
  Receive Date: 20171127
  Receipt Date: 20171127
  Transmission Date: 20180321
  Serious: No
  Sender: FDA-Public Use
  Company Number: US-SEPTODONT-201703850

PATIENT

DRUGS (1)
  1. CITANEST PLAIN [Suspect]
     Active Substance: PRILOCAINE HYDROCHLORIDE
     Indication: LOCAL ANAESTHESIA
     Route: 004

REACTIONS (1)
  - Drug ineffective [Unknown]
